FAERS Safety Report 14221390 (Version 1)
Quarter: 2017Q4

REPORT INFORMATION
  Report Type: Spontaneous
  Country: US (occurrence: US)
  Receive Date: 20171124
  Receipt Date: 20171124
  Transmission Date: 20180321
  Serious: No
  Sender: FDA-Public Use
  Company Number: US-PFIZER INC-2017507350

PATIENT
  Age: 52 Year
  Sex: Female
  Weight: 77 kg

DRUGS (1)
  1. IBRANCE [Suspect]
     Active Substance: PALBOCICLIB
     Indication: BREAST CANCER
     Dosage: 125 MG, CYCLIC (D 1-D 21 Q 28/D)
     Route: 048

REACTIONS (7)
  - Abdominal discomfort [Unknown]
  - Abdominal distension [Unknown]
  - Epistaxis [Unknown]
  - Neuropathy peripheral [Unknown]
  - Headache [Unknown]
  - Flushing [Unknown]
  - Dyspepsia [Unknown]
